FAERS Safety Report 24576099 (Version 1)
Quarter: 2024Q4

REPORT INFORMATION
  Report Type: Spontaneous
  Country: US (occurrence: None)
  Receive Date: 20241102
  Receipt Date: 20241102
  Transmission Date: 20250115
  Serious: Yes (Other)
  Sender: Public
  Company Number: None

PATIENT
  Age: 73 Year
  Sex: Female
  Weight: 64.35 kg

DRUGS (7)
  1. LEVOFLOXACIN [Suspect]
     Active Substance: LEVOFLOXACIN
     Indication: Pneumonia
     Dosage: 7 TABLETS DAILY ORAL
     Route: 048
  2. PLAVIX [Concomitant]
     Active Substance: CLOPIDOGREL BISULFATE
  3. ISOSORBIDE DINITRATE [Concomitant]
     Active Substance: ISOSORBIDE DINITRATE
  4. LISINOPRIL [Concomitant]
     Active Substance: LISINOPRIL
  5. VITAMIN D2 [Concomitant]
     Active Substance: ERGOCALCIFEROL
  6. ALENDRONATE [Concomitant]
     Active Substance: ALENDRONATE SODIUM
  7. Thymus complex [Concomitant]

REACTIONS (1)
  - Muscle spasms [None]

NARRATIVE: CASE EVENT DATE: 20241030
